FAERS Safety Report 9190585 (Version 1)
Quarter: 2013Q1

REPORT INFORMATION
  Report Type: Spontaneous
  Country: US (occurrence: None)
  Receive Date: 20130322
  Receipt Date: 20130322
  Transmission Date: 20140127
  Serious: Yes (Other)
  Sender: FDA-Public Use
  Company Number: 1303-357

PATIENT
  Age: 66 Year
  Sex: Male

DRUGS (1)
  1. EYLEA [Suspect]
     Indication: CHOROIDAL NEOVASCULARISATION
     Dosage: INTRAVITREAL
     Dates: start: 201207

REACTIONS (2)
  - Maculopathy [None]
  - Retinal disorder [None]
